FAERS Safety Report 7417510-5 (Version None)
Quarter: 2011Q2

REPORT INFORMATION
  Report Type: 
  Country: None (occurrence: None)
  Receive Date: 20110415
  Receipt Date: 20110331
  Transmission Date: 20111010
  Serious: Yes (Hospitalization, Disabling)
  Sender: FDA-Public Use
  Company Number: US-BAYER-200924709NA

PATIENT
  Age: 78 Year
  Sex: Male
  Weight: 75.864 kg

DRUGS (38)
  1. FLUOROURACIL [Suspect]
     Dosage: DAILY DOSE 4500 MG
     Route: 042
     Dates: start: 20090526, end: 20090528
  2. FLUOROURACIL [Suspect]
     Dosage: DAILY DOSE 4475 MG
     Route: 042
     Dates: start: 20090707, end: 20090709
  3. OXALIPLATIN [Suspect]
     Indication: COLORECTAL CANCER METASTATIC
     Dosage: DAILY DOSE 160 MG
     Route: 042
     Dates: start: 20090526, end: 20090526
  4. FLUOROURACIL [Suspect]
     Indication: COLORECTAL CANCER METASTATIC
     Dosage: DAILY DOSE 750 MG
     Route: 040
     Dates: start: 20090526, end: 20090526
  5. ATENOLOL [Concomitant]
     Indication: HYPERTENSION
     Dates: start: 20070101
  6. ATENOLOL [Concomitant]
     Dosage: 25 MG, UNK
     Dates: start: 20080519, end: 20091228
  7. AMLODIPINE [Concomitant]
     Dosage: 5 MG, UNK
     Dates: start: 20080519, end: 20091228
  8. SIMVASTATIN [Concomitant]
     Dosage: 40 MG, UNK
     Dates: start: 20090519, end: 20091228
  9. OXALIPLATIN [Suspect]
     Dosage: DAILY DOSE 160 MG
     Route: 042
     Dates: start: 20090707, end: 20090707
  10. ADDITIONAL STUDY MEDICATION [Suspect]
     Route: 042
     Dates: start: 20090609, end: 20090609
  11. FLUOROURACIL [Suspect]
     Dosage: DAILY DOSE 750 MG
     Route: 040
     Dates: start: 20090609, end: 20090609
  12. FLUOROURACIL [Suspect]
     Dosage: DAILY DOSE 750 MG
     Route: 040
     Dates: start: 20090707, end: 20090707
  13. ASPIRIN [Concomitant]
     Indication: VITAMIN SUPPLEMENTATION
     Dates: start: 20070101
  14. TAMSULOSIN [Concomitant]
     Indication: BENIGN PROSTATIC HYPERPLASIA
     Dates: start: 20070101
  15. TAMSULOSIN [Concomitant]
     Dosage: 0.4 MG, UNK
     Dates: start: 20080510, end: 20091228
  16. LISINOPRIL [Concomitant]
     Indication: HYPERTENSION
     Dates: start: 20070101
  17. ASCORBIC ACID [Concomitant]
     Indication: VITAMIN SUPPLEMENTATION
     Dates: start: 20090519, end: 20091228
  18. ACETAMINOPHEN [Concomitant]
     Indication: PAIN
     Dosage: UNK UNK, PRN
     Dates: start: 20090526, end: 20091228
  19. DEXAMETHASONE [Concomitant]
     Dosage: 10 MG (DAILY DOSE), ,
     Dates: start: 20090609, end: 20090609
  20. SORAFENIB (RAF KINASE INHIBITOR) [Suspect]
     Indication: COLORECTAL CANCER METASTATIC
     Dosage: 400 MG, BID
     Route: 048
     Dates: start: 20090526, end: 20090609
  21. ADDITIONAL STUDY MEDICATION [Suspect]
     Route: 042
     Dates: start: 20090707, end: 20090707
  22. METFORMIN HCL [Concomitant]
     Indication: TYPE 2 DIABETES MELLITUS
     Dates: start: 20070101
  23. METFORMIN HCL [Concomitant]
     Dosage: 500 MG, UNK
     Dates: start: 20080519, end: 20091228
  24. SIMVASTATIN [Concomitant]
     Indication: HYPERLIPIDAEMIA
     Dates: start: 20070101
  25. ASCORBIC ACID [Concomitant]
     Indication: MEDICAL DIET
  26. ONDANSETRON [Concomitant]
     Dosage: 12 MG (DAILY DOSE), ,
     Dates: start: 20090707, end: 20090707
  27. SORAFENIB (RAF KINASE INHIBITOR) [Suspect]
     Dosage: 400 MG, QD
     Route: 048
     Dates: start: 20090609, end: 20090615
  28. OXALIPLATIN [Suspect]
     Dosage: DAILY DOSE 155 MG
     Route: 042
     Dates: start: 20090609, end: 20090609
  29. FLUOROURACIL [Suspect]
     Dosage: DAILY DOSE 4450 MG
     Route: 042
     Dates: start: 20090609, end: 20090611
  30. AMLODIPINE [Concomitant]
     Indication: HYPERTENSION
     Dates: start: 20070101
  31. DEXAMETHASONE [Concomitant]
     Indication: THROMBOSIS PROPHYLAXIS
     Dosage: 10 MG (DAILY DOSE), ,
     Dates: start: 20090526, end: 20090526
  32. ADDITIONAL STUDY MEDICATION [Suspect]
     Indication: COLORECTAL CANCER METASTATIC
     Dosage: DAILY DOSE 750 MG
     Route: 042
     Dates: start: 20090526, end: 20090526
  33. ASPIRIN [Concomitant]
     Indication: ISCHAEMIC HEART DISEASE PROPHYLAXIS
     Dosage: 81 MG, UNK
     Dates: start: 20090519, end: 20091228
  34. LISINOPRIL [Concomitant]
     Dosage: 40 MG, UNK
     Dates: start: 20080519, end: 20091228
  35. ONDANSETRON [Concomitant]
     Indication: PREMEDICATION
     Dosage: 12 MG (DAILY DOSE), ,
     Dates: start: 20090526, end: 20090526
  36. HEPARIN [Concomitant]
     Indication: THROMBOSIS PROPHYLAXIS
     Dosage: UNK
     Dates: start: 20090623, end: 20090623
  37. DEXAMETHASONE [Concomitant]
     Dosage: 10 MG (DAILY DOSE), ,
     Dates: start: 20090707, end: 20090707
  38. ONDANSETRON [Concomitant]
     Dosage: 12 MG (DAILY DOSE), ,
     Dates: start: 20090609, end: 20090609

REACTIONS (4)
  - SKIN ULCER [None]
  - DIABETIC FOOT INFECTION [None]
  - OSTEOMYELITIS [None]
  - CELLULITIS [None]
